FAERS Safety Report 16652911 (Version 2)
Quarter: 2019Q3

REPORT INFORMATION
  Report Type: Spontaneous
  Country: JP (occurrence: JP)
  Receive Date: 20190731
  Receipt Date: 20190802
  Transmission Date: 20191004
  Serious: Yes (Other)
  Sender: FDA-Public Use
  Company Number: JP-ROCHE-2367415

PATIENT
  Age: 65 Year
  Sex: Male

DRUGS (1)
  1. ACTEMRA [Suspect]
     Active Substance: TOCILIZUMAB
     Indication: CASTLEMAN^S DISEASE
     Dosage: DOSAGE IS UNCERTAIN.
     Route: 065
     Dates: start: 2014

REACTIONS (2)
  - Portal hypertension [Unknown]
  - Castleman^s disease [Recovering/Resolving]

NARRATIVE: CASE EVENT DATE: 2018
